FAERS Safety Report 19081239 (Version 3)
Quarter: 2021Q2

REPORT INFORMATION
  Report Type: Spontaneous
  Country: FR (occurrence: FR)
  Receive Date: 20210331
  Receipt Date: 20210630
  Transmission Date: 20210717
  Serious: Yes (Other)
  Sender: FDA-Public Use
  Company Number: FR-BIOMARINAP-FR-2021-135728

PATIENT
  Age: 28 Year
  Sex: Female

DRUGS (5)
  1. KUVAN [Suspect]
     Active Substance: SAPROPTERIN DIHYDROCHLORIDE
     Dosage: 1200 MILLIGRAM, QD
     Route: 048
     Dates: start: 200906, end: 20111013
  2. CARBIDOPA + L?DOPA [Concomitant]
     Active Substance: CARBIDOPA\LEVODOPA
     Indication: TETRAHYDROBIOPTERIN DEFICIENCY
     Dosage: UNK, TID
     Route: 048
     Dates: start: 1998
  3. OXITRIPTAN [Concomitant]
     Active Substance: OXITRIPTAN
     Indication: TETRAHYDROBIOPTERIN DEFICIENCY
     Dosage: 50 MILLIGRAM
     Route: 048
     Dates: start: 1998
  4. KUVAN [Suspect]
     Active Substance: SAPROPTERIN DIHYDROCHLORIDE
     Indication: TETRAHYDROBIOPTERIN DEFICIENCY
     Dosage: 17.39 MILLIGRAM/KILOGRAM
     Route: 048
     Dates: start: 20180904
  5. CARBIDOPA + L?DOPA [Concomitant]
     Active Substance: CARBIDOPA\LEVODOPA
     Dosage: UNK, QD
     Route: 048
     Dates: start: 1998

REACTIONS (2)
  - Abortion spontaneous [Unknown]
  - Maternal exposure during pregnancy [Recovered/Resolved]

NARRATIVE: CASE EVENT DATE: 20210127
